FAERS Safety Report 5597919-5 (Version None)
Quarter: 2007Q4

REPORT INFORMATION
  Report Type: 
  Country: None (occurrence: None)
  Receive Date: 20071226
  Receipt Date: 20070123
  Transmission Date: 20080405
  Serious: Yes (Hospitalization)
  Sender: FDA-Public Use
  Company Number: 228365

PATIENT
  Age: 25 Year
  Sex: Female
  Weight: 55 kg

DRUGS (2)
  1. RAPTIVA [Suspect]
     Indication: PSORIASIS
     Dosage: 0.7 MG/KG, SUBCUTANEOUS
     Route: 058
     Dates: start: 20060726
  2. CYCLOSPORINE [Concomitant]

REACTIONS (1)
  - MENINGITIS ASEPTIC [None]
